FAERS Safety Report 10725143 (Version 1)
Quarter: 2015Q1

REPORT INFORMATION
  Report Type: Spontaneous
  Country: GB (occurrence: GB)
  Receive Date: 20150120
  Receipt Date: 20150120
  Transmission Date: 20150721
  Serious: Yes (Other)
  Sender: FDA-Public Use
  Company Number: GB-TEVA-534550ISR

PATIENT
  Age: 62 Year
  Sex: Male
  Weight: 65 kg

DRUGS (6)
  1. DOXYCYCLINE. [Suspect]
     Active Substance: DOXYCYCLINE
     Indication: CHRONIC OBSTRUCTIVE PULMONARY DISEASE
     Dosage: 2 STAT
     Route: 048
     Dates: start: 20141231
  2. FOSTAIR [Concomitant]
     Active Substance: BECLOMETHASONE\FORMOTEROL
     Dosage: 2 PUFFS TWICE DAILY AS NECESSARY
  3. ATORVASTATIN [Concomitant]
     Active Substance: ATORVASTATIN
     Dosage: 20 MILLIGRAM DAILY;
     Route: 048
     Dates: start: 2012
  4. QUININE SULPHATE [Concomitant]
     Active Substance: QUININE SULFATE
     Dosage: AT NIGHT.
     Dates: start: 201405
  5. TOLTERODINE [Concomitant]
     Active Substance: TOLTERODINE
     Dosage: 2 MILLIGRAM DAILY;
     Dates: start: 201406
  6. SALBUTAMOL [Concomitant]
     Active Substance: ALBUTEROL
     Dosage: 2 PUFFS TWICE DAILY AS NECESSARY

REACTIONS (4)
  - Retching [Unknown]
  - Abdominal pain upper [Unknown]
  - Malaise [Unknown]
  - Vomiting [Unknown]

NARRATIVE: CASE EVENT DATE: 20141231
